FAERS Safety Report 8337783-4 (Version None)
Quarter: 2012Q1

REPORT INFORMATION
  Report Type: 
  Country: None (occurrence: None)
  Receive Date: 20120329
  Receipt Date: 20100817
  Transmission Date: 20120608
  Serious: Yes (Other)
  Sender: FDA-Public Use
  Company Number: PHHY2010US52882

PATIENT
  Age: 84 Year
  Sex: Female
  Weight: 127 kg

DRUGS (3)
  1. EXELON [Suspect]
     Indication: DEMENTIA
     Dosage: UNK, TRANSDERMAL
     Route: 062
     Dates: start: 20100701, end: 20100809
  2. ARICEPT [Concomitant]
  3. TURMERIC (CURCUMA LONGA RHIZOME) [Concomitant]

REACTIONS (1)
  - HALLUCINATION [None]
